FAERS Safety Report 9348130 (Version 1)
Quarter: 2013Q2

REPORT INFORMATION
  Report Type: Spontaneous
  Country: US (occurrence: US)
  Receive Date: 20130614
  Receipt Date: 20130614
  Transmission Date: 20140414
  Serious: Yes (Other)
  Sender: FDA-Public Use
  Company Number: US-COVIDIEN/TYCO HEALTHCARE/MALLINCKRODT-T201302807

PATIENT
  Sex: Female

DRUGS (2)
  1. GABLOFEN [Suspect]
     Indication: MUSCLE SPASTICITY
     Dosage: 250 MCG/ML; 22 MCG/DAY
     Route: 037
     Dates: start: 2012
  2. GABLOFEN [Suspect]
     Dosage: 19.67 MCG/DAY
     Route: 037

REACTIONS (5)
  - Disease progression [Unknown]
  - Dementia [Unknown]
  - Clonus [Unknown]
  - Muscle spasticity [Recovered/Resolved]
  - Device failure [Unknown]
